FAERS Safety Report 7217577-3 (Version None)
Quarter: 2010Q4

REPORT INFORMATION
  Report Type: 
  Country: None (occurrence: None)
  Receive Date: 20101126
  Receipt Date: 20101008
  Transmission Date: 20110411
  Serious: No
  Sender: FDA-Public Use
  Company Number: 316252

PATIENT
  Age: 59 Year
  Sex: Female

DRUGS (6)
  1. VICTOZA [Suspect]
     Indication: TYPE 2 DIABETES MELLITUS
     Dosage: SUBCUTANEOUS
     Route: 058
  2. METFORMIN ER (METFORMIN HYDROCHLORIDE) [Concomitant]
  3. JANUVIA [Concomitant]
  4. LISINOPRIL [Concomitant]
  5. SIMVASTATIN [Concomitant]
  6. TRIPLEX /00050502/ (TRIFLUOPERAZIN HYDROCHLORIDE) [Concomitant]

REACTIONS (1)
  - NAUSEA [None]
